FAERS Safety Report 22957497 (Version 4)
Quarter: 2024Q3

REPORT INFORMATION
  Report Type: Spontaneous
  Country: MX (occurrence: MX)
  Receive Date: 20230919
  Receipt Date: 20240923
  Transmission Date: 20241016
  Serious: Yes (Hospitalization, Other)
  Sender: NOVARTIS
  Company Number: MX-002147023-NVSC2023MX200880

PATIENT
  Sex: Male

DRUGS (1)
  1. GLIVEC [Suspect]
     Active Substance: IMATINIB MESYLATE
     Indication: Chronic myeloid leukaemia
     Dosage: 400 MG (4X100 MG)
     Route: 065

REACTIONS (9)
  - Adrenocortical insufficiency acute [Unknown]
  - Decreased appetite [Recovering/Resolving]
  - Mobility decreased [Recovering/Resolving]
  - Hypoaesthesia [Unknown]
  - Aphasia [Recovering/Resolving]
  - General physical health deterioration [Unknown]
  - Adrenal disorder [Unknown]
  - Adrenal adenoma [Unknown]
  - Hernia [Unknown]
